FAERS Safety Report 19681057 (Version 1)
Quarter: 2021Q3

REPORT INFORMATION
  Report Type: Spontaneous
  Country: IT (occurrence: IT)
  Receive Date: 20210810
  Receipt Date: 20210810
  Transmission Date: 20211014
  Serious: Yes (Hospitalization, Other)
  Sender: FDA-Public Use
  Company Number: IT-TEVA-2021-IT-1938049

PATIENT
  Age: 60 Year
  Sex: Male

DRUGS (4)
  1. BENDAMUSTINE HYDROCHLORIDE. [Suspect]
     Active Substance: BENDAMUSTINE HYDROCHLORIDE
     Indication: NON-HODGKIN^S LYMPHOMA
     Dosage: POWDER (EXCEPT DUSTING POWDER)
     Route: 042
     Dates: start: 201909, end: 202003
  2. RITUXIMAB. [Suspect]
     Active Substance: RITUXIMAB
     Indication: NON-HODGKIN^S LYMPHOMA
     Route: 065
     Dates: start: 201909, end: 202003
  3. HYDROXYCHLOROQUINE [Suspect]
     Active Substance: HYDROXYCHLOROQUINE
     Indication: COVID-19 PNEUMONIA
     Route: 065
     Dates: start: 2020
  4. HYPERIMMUNE PLASMA (CONVALESCENT ANTI?SARS?COV?2 PLASMA) [Suspect]
     Active Substance: COVID-19 CONVALESCENT PLASMA
     Indication: COVID-19 PNEUMONIA
     Dosage: ROUTE: INFUSION, RECEIVED THREE INFUSIONS (EACH 210ML ON AN ALTERNATE DAY BASIS)
     Route: 050
     Dates: start: 20200515

REACTIONS (3)
  - Drug ineffective for unapproved indication [Unknown]
  - COVID-19 pneumonia [Recovered/Resolved]
  - Off label use [Unknown]

NARRATIVE: CASE EVENT DATE: 2020
